FAERS Safety Report 17982945 (Version 1)
Quarter: 2020Q3

REPORT INFORMATION
  Report Type: Spontaneous
  Country: US (occurrence: US)
  Receive Date: 20200706
  Receipt Date: 20200706
  Transmission Date: 20201103
  Serious: No
  Sender: FDA-Public Use
  Company Number: US-PFIZER INC-2020252007

PATIENT
  Age: 19 Year
  Sex: Female

DRUGS (4)
  1. VANOS [Concomitant]
     Active Substance: FLUOCINONIDE
  2. EUCRISA [Suspect]
     Active Substance: CRISABOROLE
     Indication: DERMATITIS ALLERGIC
     Dosage: UNK, AS NEEDED (60GM/APPLY TO AFFECTED AREA ON FACE AND EXTREMITIES TWICE A DAY AS NEEDED)
  3. MUPIROCIN CALCIUM. [Concomitant]
     Active Substance: MUPIROCIN CALCIUM
  4. HYLATOPICPLUS [Concomitant]
     Active Substance: EMOLLIENTS

REACTIONS (1)
  - Condition aggravated [Unknown]
